FAERS Safety Report 17924000 (Version 1)
Quarter: 2020Q2

REPORT INFORMATION
  Report Type: Spontaneous
  Country: US (occurrence: US)
  Receive Date: 20200622
  Receipt Date: 20200622
  Transmission Date: 20200714
  Serious: No
  Sender: FDA-Public Use
  Company Number: US-AKRON, INC.-2086468

PATIENT
  Sex: Female

DRUGS (1)
  1. CIMETIDINE HYDROCHLORIDE ORAL SOLUTION [Suspect]
     Active Substance: CIMETIDINE HYDROCHLORIDE
     Route: 048

REACTIONS (1)
  - Mast cell activation syndrome [Unknown]
